FAERS Safety Report 6228062-X (Version None)
Quarter: 2009Q2

REPORT INFORMATION
  Report Type: 
  Country: None (occurrence: None)
  Receive Date: 20090612
  Receipt Date: 20090608
  Transmission Date: 20091009
  Serious: Yes (Death, Other)
  Sender: FDA-Public Use
  Company Number: JP-MERCK-0812USA02826

PATIENT
  Age: 55 Year
  Sex: Female

DRUGS (24)
  1. FOSAMAX [Suspect]
     Indication: OSTEOPOROSIS
     Route: 048
     Dates: start: 20050601, end: 20060130
  2. FOSAMAX [Suspect]
     Route: 048
     Dates: start: 20060130, end: 20071030
  3. BENET [Suspect]
     Indication: OSTEOPOROSIS
     Route: 048
     Dates: start: 20041023, end: 20050501
  4. PREDONINE [Suspect]
     Indication: RHEUMATOID ARTHRITIS
     Route: 048
     Dates: start: 20000101
  5. FURTULON [Suspect]
     Indication: BREAST CANCER
     Route: 048
  6. LASIX [Concomitant]
     Route: 048
  7. CINAL [Concomitant]
     Route: 048
  8. RIZABEN [Concomitant]
     Route: 048
  9. ASPIRIN [Concomitant]
     Route: 048
  10. ASPARA K [Concomitant]
     Route: 048
  11. ANTOBRON [Concomitant]
     Route: 048
  12. CABAGIN-U [Concomitant]
     Route: 048
  13. ALDACTONE [Concomitant]
     Route: 048
  14. FLUTIDE [Concomitant]
  15. TIARAMIDE HYDROCHLORIDE [Concomitant]
     Route: 048
  16. PEPCID [Concomitant]
     Route: 048
  17. MUCOSOLVAN [Concomitant]
     Route: 048
  18. CYTOTEC [Concomitant]
     Route: 048
  19. FLAVITAN [Concomitant]
     Route: 048
  20. LOXONIN [Concomitant]
     Route: 048
  21. CALONAL [Concomitant]
     Route: 048
  22. ARIMIDEX [Concomitant]
     Route: 048
  23. LENDORMIN [Concomitant]
     Route: 048
  24. PLAVIX [Concomitant]
     Route: 048

REACTIONS (2)
  - OSTEONECROSIS [None]
  - RESPIRATORY FAILURE [None]
